FAERS Safety Report 14411900 (Version 2)
Quarter: 2018Q1

REPORT INFORMATION
  Report Type: Spontaneous
  Country: ZA (occurrence: ZA)
  Receive Date: 20180119
  Receipt Date: 20180328
  Transmission Date: 20180509
  Serious: Yes (Other)
  Sender: FDA-Public Use
  Company Number: ZA-009507513-1801ZAF004140

PATIENT
  Age: 23 Year
  Sex: Female
  Weight: 130 kg

DRUGS (2)
  1. NUVARING [Suspect]
     Active Substance: ETHINYL ESTRADIOL\ETONOGESTREL
     Dosage: 1 DF, QM
     Route: 067
     Dates: start: 2017
  2. NUVARING [Suspect]
     Active Substance: ETHINYL ESTRADIOL\ETONOGESTREL
     Dosage: UNK, CYCLICAL
     Route: 067
     Dates: start: 20180104, end: 20180109

REACTIONS (7)
  - Device breakage [Unknown]
  - Device expulsion [Unknown]
  - Product quality issue [Unknown]
  - Infection [Unknown]
  - Pain [Unknown]
  - Vulvovaginal discomfort [Unknown]
  - Device loosening [Unknown]

NARRATIVE: CASE EVENT DATE: 20170109
